FAERS Safety Report 12428780 (Version 1)
Quarter: 2016Q2

REPORT INFORMATION
  Report Type: Spontaneous
  Country: NO (occurrence: NO)
  Receive Date: 20160602
  Receipt Date: 20160602
  Transmission Date: 20160815
  Serious: Yes (Death, Other)
  Sender: FDA-Public Use
  Company Number: NO-AMGEN-NORSP2016070153

PATIENT
  Age: 69 Year
  Sex: Male

DRUGS (4)
  1. NPLATE [Suspect]
     Active Substance: ROMIPLOSTIM
     Indication: BONE MARROW FAILURE
     Dosage: UNK
     Route: 065
     Dates: start: 20150429, end: 20150624
  2. ENALAPRIL [Concomitant]
     Active Substance: ENALAPRIL
     Dosage: UNK
  3. NEUPOGEN [Suspect]
     Active Substance: FILGRASTIM
     Indication: BONE MARROW FAILURE
     Dosage: UNK
     Route: 065
     Dates: start: 20150422
  4. HYDROCHLOROTHIAZIDE. [Concomitant]
     Active Substance: HYDROCHLOROTHIAZIDE
     Dosage: UNK

REACTIONS (6)
  - Motor dysfunction [Recovered/Resolved]
  - Neoplasm progression [Unknown]
  - Lethargy [Recovered/Resolved]
  - Epilepsy [Recovered/Resolved]
  - Disease progression [Fatal]
  - Drug ineffective for unapproved indication [Unknown]
